FAERS Safety Report 6827462-4 (Version None)
Quarter: 2010Q3

REPORT INFORMATION
  Report Type: 
  Country: None (occurrence: None)
  Receive Date: 20100709
  Receipt Date: 20100707
  Transmission Date: 20110219
  Serious: Yes (Death, Hospitalization)
  Sender: FDA-Public Use
  Company Number: PHHO2008DE12996

PATIENT
  Sex: Male
  Weight: 84 kg

DRUGS (3)
  1. SANDIMMUNE [Suspect]
     Indication: RENAL TRANSPLANT
     Dosage: 300 MG / DAY
     Route: 048
     Dates: start: 20080918, end: 20081027
  2. MYFORTIC [Suspect]
     Indication: RENAL TRANSPLANT
     Dosage: 1440 MG / DAY
     Route: 048
     Dates: start: 20080918, end: 20081027
  3. NO TREATMENT RECEIVED NOMED [Suspect]
     Indication: RENAL TRANSPLANT
     Dosage: UNK

REACTIONS (6)
  - CARDIAC ARREST [None]
  - CARDIAC PACEMAKER INSERTION [None]
  - DEVICE MALFUNCTION [None]
  - PYREXIA [None]
  - SEPSIS [None]
  - TACHYARRHYTHMIA [None]
